FAERS Safety Report 16558512 (Version 2)
Quarter: 2019Q3

REPORT INFORMATION
  Report Type: Spontaneous
  Country: JP (occurrence: JP)
  Receive Date: 20190711
  Receipt Date: 20190716
  Transmission Date: 20191004
  Serious: Yes (Other)
  Sender: FDA-Public Use
  Company Number: JP-ORION CORPORATION ORION PHARMA-ENTC2019-0180

PATIENT
  Age: 68 Year
  Sex: Male

DRUGS (2)
  1. TRERIEF [Concomitant]
     Active Substance: ZONISAMIDE
     Route: 065
  2. STALEVO [Suspect]
     Active Substance: CARBIDOPA\ENTACAPONE\LEVODOPA
     Indication: PARKINSON^S DISEASE
     Route: 048

REACTIONS (2)
  - Haemorrhage [Recovered/Resolved]
  - Bleeding time prolonged [Recovered/Resolved]
